FAERS Safety Report 6187304-X (Version None)
Quarter: 2009Q2

REPORT INFORMATION
  Report Type: 
  Country: None (occurrence: None)
  Receive Date: 20090512
  Receipt Date: 20090501
  Transmission Date: 20091009
  Serious: Yes (Hospitalization, Other)
  Sender: FDA-Public Use
  Company Number: US-JNJFOC-20090500969

PATIENT
  Sex: Male
  Weight: 80 kg

DRUGS (15)
  1. DOXORUBICIN HCL [Suspect]
     Indication: MULTIPLE MYELOMA
     Dosage: CYCLE 1
     Route: 042
  2. VELCADE [Suspect]
     Indication: MULTIPLE MYELOMA
     Dosage: CYCLE 1
     Route: 042
  3. DEXAMETHASONE 4MG TAB [Suspect]
     Indication: MULTIPLE MYELOMA
     Dosage: CYCLE 1
     Route: 048
  4. COLACE [Concomitant]
     Route: 048
  5. OXYCONTIN [Concomitant]
     Route: 048
  6. ALLOPURINOL [Concomitant]
     Route: 048
  7. ATOVAQUONE [Concomitant]
     Route: 048
  8. ZOVIRAX [Concomitant]
     Route: 048
  9. SEVELAMER [Concomitant]
     Route: 048
  10. SODIUM BICARBONATE IN PLASTIC CONTAINER [Concomitant]
     Route: 048
  11. FLUCONAZOLE [Concomitant]
     Route: 048
  12. SENNA [Concomitant]
     Route: 048
  13. OMEPRAZOLE [Concomitant]
     Route: 048
  14. OXYCODONE HCL [Concomitant]
     Dosage: EVERY 4 HOURS
     Route: 048
  15. LACTULOSE [Concomitant]
     Route: 048

REACTIONS (4)
  - DEEP VEIN THROMBOSIS [None]
  - HYPOCALCAEMIA [None]
  - HYPONATRAEMIA [None]
  - LYMPHOPENIA [None]
